FAERS Safety Report 6266599-8 (Version None)
Quarter: 2009Q3

REPORT INFORMATION
  Report Type: 
  Country: None (occurrence: None)
  Receive Date: 20090710
  Receipt Date: 20090702
  Transmission Date: 20100115
  Serious: Yes (Other)
  Sender: FDA-Public Use
  Company Number: CLOF-1000616

PATIENT
  Age: 16 Month
  Sex: Male

DRUGS (5)
  1. CLOLAR [Suspect]
     Indication: ACUTE LYMPHOCYTIC LEUKAEMIA
     Dosage: INTRAVENOUS
     Route: 042
     Dates: start: 20090401, end: 20090401
  2. MELPHALAN (MELPHALAN) [Suspect]
     Indication: ACUTE LYMPHOCYTIC LEUKAEMIA
     Dates: start: 20090401, end: 20090401
  3. THIOTEPA [Suspect]
     Indication: ACUTE LYMPHOCYTIC LEUKAEMIA
     Dates: start: 20090401, end: 20090401
  4. TACROLIMUS [Concomitant]
  5. METHOTREXATE [Concomitant]

REACTIONS (16)
  - ACUTE GRAFT VERSUS HOST DISEASE IN INTESTINE [None]
  - ACUTE RESPIRATORY DISTRESS SYNDROME [None]
  - ADENOVIRUS INFECTION [None]
  - BONE MARROW TRANSPLANT [None]
  - BRONCHOSPASM [None]
  - CENTRAL LINE INFECTION [None]
  - EPISTAXIS [None]
  - EPSTEIN-BARR VIRUS TEST POSITIVE [None]
  - GASTROINTESTINAL HAEMORRHAGE [None]
  - HEPATOSPLENOMEGALY [None]
  - HYPOTHERMIA [None]
  - INFLUENZA SEROLOGY POSITIVE [None]
  - PARAINFLUENZAE VIRUS INFECTION [None]
  - PNEUMONITIS [None]
  - RASH ERYTHEMATOUS [None]
  - RASH MACULO-PAPULAR [None]
